FAERS Safety Report 15297827 (Version 1)
Quarter: 2018Q3

REPORT INFORMATION
  Report Type: Spontaneous
  Country: US (occurrence: US)
  Receive Date: 20180820
  Receipt Date: 20180820
  Transmission Date: 20181010
  Serious: Yes (Hospitalization)
  Sender: FDA-Public Use
  Company Number: US-NOVOPROD-609055

PATIENT
  Age: 76 Year
  Sex: Female
  Weight: 44.9 kg

DRUGS (2)
  1. NOVOLOG [Suspect]
     Active Substance: INSULIN ASPART
     Indication: TYPE 1 DIABETES MELLITUS
     Route: 058
  2. LEVEMIR [Suspect]
     Active Substance: INSULIN DETEMIR
     Indication: TYPE 1 DIABETES MELLITUS
     Dosage: 7 UNITS IN AM, 1?2 UNITS PM
     Route: 058

REACTIONS (6)
  - Blood glucose fluctuation [Not Recovered/Not Resolved]
  - Injury [Unknown]
  - Heart rate irregular [Unknown]
  - Pruritus [Unknown]
  - Urticaria [Recovered/Resolved]
  - Hypoglycaemia unawareness [Unknown]
